FAERS Safety Report 7628208-2 (Version None)
Quarter: 2011Q3

REPORT INFORMATION
  Report Type: 
  Country: None (occurrence: None)
  Receive Date: 20110722
  Receipt Date: 20110711
  Transmission Date: 20111222
  Serious: Yes (Other)
  Sender: FDA-Public Use
  Company Number: US-ELI_LILLY_AND_COMPANY-US201102005873

PATIENT
  Sex: Female

DRUGS (15)
  1. FORTEO [Suspect]
     Dosage: 20 UG, DAILY (1/D)
  2. OSCAL 500-D [Concomitant]
  3. FORTEO [Suspect]
     Dosage: 20 UG, QD
  4. LIBRIUM [Concomitant]
  5. FORTEO [Suspect]
     Indication: OSTEOPOROSIS
     Dosage: 20 UG, DAILY (1/D)
     Dates: start: 20110101
  6. FORTEO [Suspect]
     Dosage: 20 UG, QD
  7. VITAMIN D [Concomitant]
  8. ASPIRIN [Concomitant]
  9. FORTEO [Suspect]
     Dosage: 20 UG, QD
  10. MULTI-VITAMIN [Concomitant]
  11. INDERAL [Concomitant]
  12. PAXIL [Concomitant]
  13. FORTEO [Suspect]
     Dosage: 20 UG, QD
  14. VYTORIN [Concomitant]
  15. OXYBUTYNIN [Concomitant]

REACTIONS (15)
  - MULTIPLE ALLERGIES [None]
  - COUGH [None]
  - HEART RATE INCREASED [None]
  - FALL [None]
  - WAIST CIRCUMFERENCE INCREASED [None]
  - INFECTION [None]
  - INJECTION SITE HAEMATOMA [None]
  - CAROTID ARTERY OCCLUSION [None]
  - INJECTION SITE HAEMORRHAGE [None]
  - EYELID DISORDER [None]
  - CONTUSION [None]
  - WEIGHT INCREASED [None]
  - FATIGUE [None]
  - KIDNEY INFECTION [None]
  - THYROID DISORDER [None]
